FAERS Safety Report 15390669 (Version 1)
Quarter: 2018Q3

REPORT INFORMATION
  Report Type: Spontaneous
  Country: US (occurrence: US)
  Receive Date: 20180917
  Receipt Date: 20180917
  Transmission Date: 20181010
  Serious: No
  Sender: FDA-Public Use
  Company Number: US-SA-2018SA255031

PATIENT
  Age: 28 Year
  Sex: Female

DRUGS (1)
  1. LEMTRADA [Suspect]
     Active Substance: ALEMTUZUMAB
     Dosage: UNK, UNK
     Route: 041

REACTIONS (6)
  - Pyrexia [Unknown]
  - Pruritus [Unknown]
  - Pruritus generalised [Unknown]
  - Headache [Recovered/Resolved]
  - Upper-airway cough syndrome [Unknown]
  - Nasal congestion [Unknown]
